FAERS Safety Report 9336494 (Version 2)
Quarter: 2013Q2

REPORT INFORMATION
  Report Type: Spontaneous
  Country: US (occurrence: US)
  Receive Date: 20130607
  Receipt Date: 20130620
  Transmission Date: 20140414
  Serious: No
  Sender: FDA-Public Use
  Company Number: US-PFIZER INC-2013170115

PATIENT
  Sex: 0

DRUGS (2)
  1. NEURONTIN [Suspect]
     Dosage: 900 MG, 2X/DAY
     Route: 048
  2. NEURONTIN [Suspect]
     Dosage: 600 MG, 2X/DAY
     Route: 048

REACTIONS (2)
  - Headache [Unknown]
  - Dizziness [Recovered/Resolved]
